FAERS Safety Report 8599396-9 (Version None)
Quarter: 2012Q3

REPORT INFORMATION
  Report Type: 
  Country: None (occurrence: None)
  Receive Date: 20120808
  Receipt Date: 20120808
  Transmission Date: 20120928
  Serious: Yes (Hospitalization)
  Sender: FDA-Public Use
  Company Number: None

PATIENT
  Age: 39 Year
  Sex: Female
  Weight: 53 kg

DRUGS (2)
  1. PHENYTOIN [Suspect]
     Indication: CONVULSION
     Dosage: 300 MG TID PO PRIOR TO ADMISSION
     Route: 048
  2. ALPRAZOLAM [Concomitant]

REACTIONS (6)
  - INCORRECT DOSE ADMINISTERED [None]
  - DRUG PRESCRIBING ERROR [None]
  - ASTHENIA [None]
  - MENTAL STATUS CHANGES [None]
  - NAUSEA [None]
  - ANTICONVULSANT DRUG LEVEL ABOVE THERAPEUTIC [None]
